FAERS Safety Report 9270012 (Version 2)
Quarter: 2013Q2

REPORT INFORMATION
  Report Type: Spontaneous
  Country: HR (occurrence: HR)
  Receive Date: 20130503
  Receipt Date: 20130618
  Transmission Date: 20140414
  Serious: No
  Sender: FDA-Public Use
  Company Number: HR-ELI_LILLY_AND_COMPANY-HR201304007660

PATIENT
  Age: 70 Year
  Sex: Female
  Weight: 60 kg

DRUGS (3)
  1. FORTEO [Suspect]
     Indication: OSTEOPOROSIS
     Dosage: 20 UG, QD
     Route: 058
     Dates: start: 201301, end: 201304
  2. VITAMIN D3 [Concomitant]
     Dosage: 600 IU, QD
     Route: 065
  3. CALCIUM [Concomitant]
     Dosage: 1 G, QD
     Route: 065

REACTIONS (5)
  - Back pain [Unknown]
  - Headache [Unknown]
  - Chest pain [Unknown]
  - Muscle spasms [Unknown]
  - Nausea [Unknown]
